FAERS Safety Report 20404903 (Version 3)
Quarter: 2022Q3

REPORT INFORMATION
  Report Type: Report from Study
  Country: JP (occurrence: JP)
  Receive Date: 20220131
  Receipt Date: 20220812
  Transmission Date: 20221027
  Serious: Yes (Hospitalization, Disabling, Other)
  Sender: FDA-Public Use
  Company Number: JP-ASTELLAS-2022JP001680

PATIENT
  Age: 72 Year
  Sex: Male

DRUGS (2)
  1. ENFORTUMAB VEDOTIN [Suspect]
     Active Substance: ENFORTUMAB VEDOTIN
     Indication: Transitional cell carcinoma
     Route: 041
     Dates: start: 20220113, end: 20220120
  2. ZOMETA [Concomitant]
     Active Substance: ZOLEDRONIC ACID
     Indication: Hypercalcaemia
     Route: 065
     Dates: start: 20220118, end: 20220118

REACTIONS (3)
  - Hypercalcaemia [Recovered/Resolved]
  - Delirium [Recovering/Resolving]
  - Abulia [Not Recovered/Not Resolved]

NARRATIVE: CASE EVENT DATE: 20220101
